FAERS Safety Report 8268343-1 (Version None)
Quarter: 2012Q2

REPORT INFORMATION
  Report Type: 
  Country: None (occurrence: None)
  Receive Date: 20120409
  Receipt Date: 20120402
  Transmission Date: 20120825
  Serious: Yes (Other)
  Sender: FDA-Public Use
  Company Number: US-ABBOTT-12P-163-0909099-00

PATIENT
  Sex: Female
  Weight: 74.456 kg

DRUGS (6)
  1. METOPROLOL TARTRATE [Concomitant]
     Indication: HYPERTENSION
  2. PROZAC [Concomitant]
     Indication: DEPRESSION
  3. LISINOPRIL [Concomitant]
     Indication: HYPERTENSION
  4. HUMIRA [Suspect]
     Indication: PSORIASIS
     Dosage: LOADING DOSE
     Dates: start: 20110701
  5. HUMIRA [Suspect]
     Dates: end: 20111201
  6. ELAVIL [Concomitant]
     Indication: DEPRESSION

REACTIONS (14)
  - ARTERIOSCLEROSIS CORONARY ARTERY [None]
  - GAIT DISTURBANCE [None]
  - ALOPECIA [None]
  - PAIN [None]
  - BALANCE DISORDER [None]
  - EXERCISE TOLERANCE DECREASED [None]
  - PLEURAL EFFUSION [None]
  - CHEST PAIN [None]
  - PSORIASIS [None]
  - FALL [None]
  - POST-THORACOTOMY PAIN SYNDROME [None]
  - DYSPNOEA [None]
  - PAIN IN EXTREMITY [None]
  - PRURITUS [None]
